FAERS Safety Report 8544255-0 (Version None)
Quarter: 2012Q3

REPORT INFORMATION
  Report Type: 
  Country: None (occurrence: None)
  Receive Date: 20120727
  Receipt Date: 20120718
  Transmission Date: 20120928
  Serious: Yes (Other)
  Sender: FDA-Public Use
  Company Number: ES-ELI_LILLY_AND_COMPANY-ES201206000568

PATIENT
  Sex: Male

DRUGS (1)
  1. FORTEO [Suspect]
     Indication: FEMUR FRACTURE
     Dosage: UNK, UNKNOWN
     Route: 065
     Dates: start: 20120601

REACTIONS (2)
  - OFF LABEL USE [None]
  - FEMUR FRACTURE [None]
